FAERS Safety Report 5882751-5 (Version None)
Quarter: 2008Q3

REPORT INFORMATION
  Report Type: 
  Country: None (occurrence: None)
  Receive Date: 20080913
  Receipt Date: 20080814
  Transmission Date: 20090109
  Serious: No
  Sender: FDA-Public Use
  Company Number: US-ABBOTT-08P-163-0471119-00

PATIENT
  Sex: Female

DRUGS (5)
  1. HUMIRA [Suspect]
     Indication: PSORIASIS
     Route: 050
     Dates: start: 20080401
  2. VITAMIN TAB [Concomitant]
     Indication: VITAMIN SUPPLEMENTATION
     Route: 048
  3. IRON [Concomitant]
     Indication: MINERAL SUPPLEMENTATION
     Route: 048
  4. CA [Concomitant]
     Indication: MINERAL SUPPLEMENTATION
     Route: 048
  5. METHOTREXATE [Concomitant]
     Indication: DRUG USE FOR UNKNOWN INDICATION
     Route: 048
     Dates: start: 20080813

REACTIONS (6)
  - CELLULITIS [None]
  - HOT FLUSH [None]
  - OEDEMA PERIPHERAL [None]
  - PSORIASIS [None]
  - RASH GENERALISED [None]
  - SWELLING FACE [None]
